FAERS Safety Report 21908903 (Version 1)
Quarter: 2023Q1

REPORT INFORMATION
  Report Type: Spontaneous
  Country: US (occurrence: US)
  Receive Date: 20230125
  Receipt Date: 20230125
  Transmission Date: 20230417
  Serious: No
  Sender: FDA-Public Use
  Company Number: US-BIOGEN-2023BI01183586

PATIENT
  Sex: Male

DRUGS (19)
  1. AVONEX PEN [Suspect]
     Active Substance: INTERFERON BETA-1A
     Indication: Multiple sclerosis
     Dosage: INJECT 30 MCG INTRAMUSCULARLY ONCE WEEKLY
     Route: 050
  2. AVONEX PEN [Suspect]
     Active Substance: INTERFERON BETA-1A
  3. AVONEX PEN [Suspect]
     Active Substance: INTERFERON BETA-1A
  4. AVONEX PEN [Suspect]
     Active Substance: INTERFERON BETA-1A
  5. XANAX [Concomitant]
     Active Substance: ALPRAZOLAM
     Route: 050
  6. ASPIRIN EC LOW DOSE [Concomitant]
     Route: 050
  7. WELLBUTRIN SR [Concomitant]
     Active Substance: BUPROPION HYDROCHLORIDE
     Route: 050
  8. COREG [Concomitant]
     Active Substance: CARVEDILOL
     Route: 050
  9. XIGDUO XR [Concomitant]
     Active Substance: DAPAGLIFLOZIN PROPANEDIOL\METFORMIN HYDROCHLORIDE
     Route: 050
  10. BYDUREON [Concomitant]
     Active Substance: EXENATIDE
     Route: 050
  11. PEPCID [Concomitant]
     Active Substance: FAMOTIDINE
     Route: 050
  12. LASIX [Concomitant]
     Active Substance: FUROSEMIDE
     Route: 050
  13. LANTUS SOLOSTAR [Concomitant]
     Active Substance: INSULIN GLARGINE
     Route: 050
  14. BENICAR [Concomitant]
     Active Substance: OLMESARTAN MEDOXOMIL
     Route: 050
  15. PRAVACHOL [Concomitant]
     Active Substance: PRAVASTATIN SODIUM
     Route: 050
  16. ZOLOFT [Concomitant]
     Active Substance: SERTRALINE HYDROCHLORIDE
     Route: 050
  17. TRAZODONE HCL [Concomitant]
     Active Substance: TRAZODONE HYDROCHLORIDE
     Route: 050
  18. TRULICITY [Concomitant]
     Active Substance: DULAGLUTIDE
     Route: 050
  19. INVOKANA [Concomitant]
     Active Substance: CANAGLIFLOZIN
     Route: 050

REACTIONS (2)
  - Tremor [Unknown]
  - Pyrexia [Unknown]
